FAERS Safety Report 5118509-4 (Version None)
Quarter: 2006Q4

REPORT INFORMATION
  Report Type: 
  Country: None (occurrence: None)
  Receive Date: 20061002
  Receipt Date: 20060925
  Transmission Date: 20070319
  Serious: Yes (Death, Disabling, Other)
  Sender: FDA-Public Use
  Company Number: PHHO2006JP16071

PATIENT
  Age: 24 Year
  Sex: Male

DRUGS (13)
  1. CELLCEPT [Suspect]
     Indication: LUNG TRANSPLANT
     Dosage: 1500 MG / DAY
     Route: 048
     Dates: start: 20051109, end: 20060801
  2. PREDNISOLONE [Concomitant]
     Dosage: 15 MG / DAY
     Route: 048
  3. TARGOCID [Concomitant]
  4. BACTRIM [Concomitant]
  5. ALFAROL [Concomitant]
  6. ITRIZOLE [Concomitant]
  7. NEORAL [Suspect]
     Indication: TRANSPLANT
     Dosage: 650 MG / DAY
     Route: 048
     Dates: start: 20051031, end: 20051125
  8. NEORAL [Suspect]
     Dosage: 250 MG / DAY
     Route: 048
     Dates: start: 20051126, end: 20060213
  9. NEORAL [Suspect]
     Dosage: 140 MG / DAY
     Route: 048
     Dates: start: 20060214, end: 20060512
  10. NEORAL [Suspect]
     Dosage: 120 MG / DAY
     Route: 048
     Dates: start: 20060513, end: 20060914
  11. NEORAL [Suspect]
     Dosage: 100 MG / DAY
     Route: 048
  12. NEORAL [Suspect]
     Dosage: NOT REPORTED
     Route: 048
  13. NEORAL [Suspect]
     Dosage: 140 - 160 MG / DAY
     Route: 048
     Dates: start: 20040901, end: 20040901

REACTIONS (22)
  - BACK PAIN [None]
  - BRAIN SCAN ABNORMAL [None]
  - CEREBRAL DISORDER [None]
  - COORDINATION ABNORMAL [None]
  - CYTOMEGALOVIRUS ANTIGEN POSITIVE [None]
  - DEPRESSED LEVEL OF CONSCIOUSNESS [None]
  - DISORIENTATION [None]
  - EATING DISORDER [None]
  - ENCEPHALITIS VIRAL [None]
  - FACIAL PALSY [None]
  - IIIRD NERVE PARALYSIS [None]
  - INAPPROPRIATE ANTIDIURETIC HORMONE SECRETION [None]
  - LUNG TRANSPLANT [None]
  - LUNG TRANSPLANT REJECTION [None]
  - MEMORY IMPAIRMENT [None]
  - MONOPLEGIA [None]
  - MOVEMENT DISORDER [None]
  - NERVOUS SYSTEM DISORDER [None]
  - OBLITERATIVE BRONCHIOLITIS [None]
  - OSTEOPOROSIS [None]
  - RENAL IMPAIRMENT [None]
  - SPEECH DISORDER [None]
